FAERS Safety Report 17294857 (Version 5)
Quarter: 2022Q3

REPORT INFORMATION
  Report Type: Spontaneous
  Country: PT (occurrence: PT)
  Receive Date: 20200121
  Receipt Date: 20220909
  Transmission Date: 20221026
  Serious: Yes (Hospitalization, Other)
  Sender: FDA-Public Use
  Company Number: NVSC2020PT012708

PATIENT
  Age: 72 Year
  Sex: Male

DRUGS (16)
  1. AZATHIOPRINE [Suspect]
     Active Substance: AZATHIOPRINE
     Indication: Inflammatory bowel disease
     Dosage: 150 MG, QD
     Route: 065
  2. AZATHIOPRINE [Suspect]
     Active Substance: AZATHIOPRINE
     Indication: Henoch-Schonlein purpura
  3. PREDNISOLONE [Suspect]
     Active Substance: PREDNISOLONE
     Indication: Inflammatory bowel disease
     Dosage: 40 MG, QD (20-40 MG QD)
     Route: 065
  4. PREDNISOLONE [Suspect]
     Active Substance: PREDNISOLONE
     Indication: Henoch-Schonlein purpura
     Dosage: 20 MG, QD
     Route: 065
  5. PREDNISOLONE [Suspect]
     Active Substance: PREDNISOLONE
     Dosage: 5 MG, QD
     Route: 065
  6. PREDNISOLONE [Suspect]
     Active Substance: PREDNISOLONE
     Dosage: 7.5 MG, QD
     Route: 065
  7. PREDNISOLONE [Suspect]
     Active Substance: PREDNISOLONE
     Dosage: 12.5 MG, QD
     Route: 065
  8. LANSOPRAZOLE [Suspect]
     Active Substance: LANSOPRAZOLE
     Indication: Henoch-Schonlein purpura
     Dosage: 20 MG, QD
     Route: 065
  9. CALCIUM CARBONATE\CHOLECALCIFEROL [Suspect]
     Active Substance: CALCIUM CARBONATE\CHOLECALCIFEROL
     Indication: Henoch-Schonlein purpura
     Dosage: 1 DF, QD
     Route: 065
  10. RISEDRONATE SODIUM [Suspect]
     Active Substance: RISEDRONATE SODIUM
     Indication: Henoch-Schonlein purpura
     Dosage: 35 MG, QW
     Route: 065
  11. RITUXIMAB [Suspect]
     Active Substance: RITUXIMAB
     Indication: Henoch-Schonlein purpura
     Dosage: UNK
     Route: 065
  12. METHOTREXATE [Suspect]
     Active Substance: METHOTREXATE
     Indication: Henoch-Schonlein purpura
     Dosage: 10 MG, QW
     Route: 065
  13. MYCOPHENOLATE MOFETIL [Suspect]
     Active Substance: MYCOPHENOLATE MOFETIL
     Indication: Henoch-Schonlein purpura
     Dosage: 1500 MG, QD
     Route: 065
  14. MYCOPHENOLATE MOFETIL [Suspect]
     Active Substance: MYCOPHENOLATE MOFETIL
     Dosage: 2500 MG, QD
     Route: 065
  15. INFLIXIMAB [Suspect]
     Active Substance: INFLIXIMAB
     Indication: Henoch-Schonlein purpura
     Dosage: UNK
     Route: 042
  16. INFLIXIMAB [Suspect]
     Active Substance: INFLIXIMAB
     Indication: Inflammatory bowel disease

REACTIONS (18)
  - Henoch-Schonlein purpura [Unknown]
  - Purpura [Unknown]
  - Nausea [Unknown]
  - Haematochezia [Unknown]
  - Abdominal pain [Unknown]
  - Arthritis [Recovering/Resolving]
  - Condition aggravated [Unknown]
  - Cutaneous vasculitis [Unknown]
  - Rectal haemorrhage [Unknown]
  - Chronic kidney disease [Recovering/Resolving]
  - Proteinuria [Recovering/Resolving]
  - Pneumonia [Unknown]
  - Pyelonephritis acute [Unknown]
  - Epididymitis [Unknown]
  - Cystitis escherichia [Unknown]
  - Product use in unapproved indication [Unknown]
  - Drug ineffective [Unknown]
  - Off label use [Unknown]
